FAERS Safety Report 21685018 (Version 1)
Quarter: 2022Q4

REPORT INFORMATION
  Report Type: Spontaneous
  Country: US (occurrence: US)
  Receive Date: 20221206
  Receipt Date: 20221206
  Transmission Date: 20230113
  Serious: No
  Sender: FDA-Public Use
  Company Number: US-RECORDATI-2022001479

PATIENT

DRUGS (2)
  1. PASIREOTIDE [Suspect]
     Active Substance: PASIREOTIDE
     Indication: Hyperinsulinaemic hypoglycaemia
     Dosage: 0.9 MILLIGRAM, EVERY 12 HOURS
     Route: 058
  2. DEXTROSE [Suspect]
     Active Substance: DEXTROSE
     Indication: Blood glucose decreased
     Route: 042

REACTIONS (2)
  - Hyperglycaemia [Unknown]
  - Off label use [Recovered/Resolved]
